FAERS Safety Report 8166378 (Version 2)
Quarter: 2012Q4

REPORT INFORMATION
  Report Type: 
  Country: US (occurrence: US)
  Receive Date: 20111003
  Receipt Date: 20121012
  Transmission Date: 20130627
  Serious: Yes (Hospitalization, Other)
  Sender: FDA-Public Use
  Company Number: US-ELI_LILLY_AND_COMPANY-US201102006751

PATIENT
  Age: 63 None
  Sex: Female
  Weight: 86.17 kg

DRUGS (14)
  1. BYETTA [Suspect]
     Indication: TYPE 2 DIABETES MELLITUS
     Dosage: 5 ug, 2/D
     Route: 058
     Dates: start: 2007
  2. BYETTA [Suspect]
     Dosage: 5 ug, bid
     Route: 058
  3. BYETTA [Suspect]
     Dosage: 5 ug, bid
     Route: 058
  4. GLUCOPHAGE /USA/ [Concomitant]
     Indication: TYPE 2 DIABETES MELLITUS
     Dosage: 1500 mg, daily (1/D)
     Route: 048
  5. GLYBURIDE [Concomitant]
     Indication: TYPE 2 DIABETES MELLITUS
     Dosage: 5 mg, each morning
  6. GLYBURIDE [Concomitant]
     Dosage: 2.5 mg, each evening
  7. GLYBURIDE [Concomitant]
     Dosage: 5 mg, each evening
  8. GLYBURIDE [Concomitant]
     Dosage: 5 mg, UNK
     Route: 048
  9. FISH OIL [Concomitant]
     Dosage: 7200 mg, daily (1/D)
     Route: 048
  10. LISINOPRIL /USA/ [Concomitant]
     Indication: BLOOD PRESSURE
     Dosage: 20 mg, daily (1/D)
     Route: 048
  11. LEVOTHYROXINE [Concomitant]
     Indication: THYROID DISORDER
     Dosage: 100 mg, daily (1/D)
     Route: 048
  12. BABY ASPIRIN [Concomitant]
     Dosage: 81 mg, daily (1/D)
     Route: 048
  13. NEURONTIN /USA/ [Concomitant]
     Indication: OESOPHAGEAL ULCER
     Dosage: UNK, daily (1/D)
  14. PRAVASTATIN [Concomitant]
     Indication: BLOOD CHOLESTEROL
     Dosage: 20 mg, daily (1/D)
     Route: 048

REACTIONS (7)
  - Oesophageal obstruction [Recovered/Resolved]
  - Urinary tract infection [Recovered/Resolved]
  - Feeling cold [Not Recovered/Not Resolved]
  - Blood glucose increased [Not Recovered/Not Resolved]
  - Blood glucose decreased [Not Recovered/Not Resolved]
  - Nausea [Recovered/Resolved]
  - Weight decreased [Recovered/Resolved]
